FAERS Safety Report 25530891 (Version 2)
Quarter: 2025Q3

REPORT INFORMATION
  Report Type: Report from Study
  Country: US (occurrence: US)
  Receive Date: 20250708
  Receipt Date: 20250730
  Transmission Date: 20251020
  Serious: Yes (Other)
  Sender: ELI LILLY AND COMPANY
  Company Number: US-ELI_LILLY_AND_COMPANY-US202506008298

PATIENT
  Age: 68 Year
  Sex: Male
  Weight: 70 kg

DRUGS (3)
  1. KISUNLA [Suspect]
     Active Substance: DONANEMAB-AZBT
     Indication: Dementia
     Dosage: UNK, MONTHLY (1/M) (1ST INFUSION)
     Route: 042
     Dates: start: 20250301
  2. KISUNLA [Suspect]
     Active Substance: DONANEMAB-AZBT
     Dosage: UNK, MONTHLY (1/M) (2ND INFUSION)
     Route: 042
     Dates: start: 20250329
  3. KISUNLA [Suspect]
     Active Substance: DONANEMAB-AZBT
     Dosage: UNK, MONTHLY (1/M) (3RD INFUSION)
     Route: 042
     Dates: start: 20250426, end: 20250516

REACTIONS (2)
  - Cerebral haemorrhage [Not Recovered/Not Resolved]
  - Amyloid related imaging abnormality-oedema/effusion [Recovered/Resolved]
